FAERS Safety Report 12156436 (Version 9)
Quarter: 2019Q4

REPORT INFORMATION
  Report Type: Spontaneous
  Country: JP (occurrence: JP)
  Receive Date: 20160307
  Receipt Date: 20191205
  Transmission Date: 20200122
  Serious: Yes (Life-Threatening, Hospitalization, Disabling)
  Sender: FDA-Public Use
  Company Number: JP-PFIZER INC-2016137347

PATIENT
  Age: 40 Year
  Sex: Female
  Weight: 51 kg

DRUGS (11)
  1. PROVERA [Suspect]
     Active Substance: MEDROXYPROGESTERONE ACETATE
     Dosage: UNK, DAILY
  2. HCG [Suspect]
     Active Substance: GONADOTROPHIN, CHORIONIC
     Dosage: UNK  (WEEKLY OR BIWEEKLY)
  3. CEFNIL [Suspect]
     Active Substance: CEFDINIR
     Indication: ANTIBIOTIC PROPHYLAXIS
     Dosage: 100 MG, 3X/DAY
     Route: 048
     Dates: start: 201510
  4. CABERGOLINE. [Suspect]
     Active Substance: CABERGOLINE
     Indication: INFERTILITY
     Dosage: 1 DF, 1X/DAY
     Route: 048
     Dates: start: 201502
  5. CEFNIL [Suspect]
     Active Substance: CEFDINIR
     Indication: PROPHYLAXIS
     Dosage: UNK (2DAYS/MONTH)/(2 DAYS EVERY MONTH)
  6. TOKISHAKUYAKUSAN [Suspect]
     Active Substance: HERBALS
     Indication: INFERTILITY
     Dosage: 2 G, 3X/DAY
     Route: 048
     Dates: start: 201507
  7. CLOMID [Suspect]
     Active Substance: CLOMIPHENE CITRATE
     Indication: INFERTILITY
     Dosage: 50 MG, 1X/DAY
     Route: 048
     Dates: start: 201601
  8. CLOMID [Suspect]
     Active Substance: CLOMIPHENE CITRATE
     Dosage: UNK (5 DAYS/MONTH)/(5 DAYS EVERY MONTH)
  9. HCG [Suspect]
     Active Substance: GONADOTROPHIN, CHORIONIC
     Indication: INFERTILITY
     Dosage: 5000 IU, DAILY
     Route: 030
     Dates: start: 201601
  10. CABERGOLINE. [Suspect]
     Active Substance: CABERGOLINE
     Dosage: UNK, WEEKLY
     Route: 048
  11. PROVERA [Suspect]
     Active Substance: MEDROXYPROGESTERONE ACETATE
     Indication: INFERTILITY
     Dosage: 1 DF, 1X/DAY
     Route: 048
     Dates: start: 201502

REACTIONS (1)
  - Stevens-Johnson syndrome [Recovering/Resolving]

NARRATIVE: CASE EVENT DATE: 20160227
